FAERS Safety Report 17731792 (Version 1)
Quarter: 2020Q2

REPORT INFORMATION
  Report Type: Spontaneous
  Country: IR (occurrence: IR)
  Receive Date: 20200501
  Receipt Date: 20200501
  Transmission Date: 20200714
  Serious: Yes (Other)
  Sender: FDA-Public Use
  Company Number: IR-SUN PHARMACEUTICAL INDUSTRIES LTD-2020RR-245686

PATIENT
  Age: 41 Year
  Sex: Male

DRUGS (12)
  1. TEMOZOLOMIDE. [Suspect]
     Active Substance: TEMOZOLOMIDE
     Indication: GLIOBLASTOMA
     Dosage: UNK
     Route: 065
  2. BUSPIRONE [Suspect]
     Active Substance: BUSPIRONE HYDROCHLORIDE
     Indication: BRUXISM
     Dosage: UNK
     Route: 065
  3. MIRTAZAPINE. [Suspect]
     Active Substance: MIRTAZAPINE
     Indication: DECREASED APPETITE
  4. MIRTAZAPINE. [Suspect]
     Active Substance: MIRTAZAPINE
     Indication: AMNESIA
  5. BACLOFEN. [Suspect]
     Active Substance: BACLOFEN
     Indication: BRUXISM
     Dosage: UNK
     Route: 065
  6. GABAPENTIN. [Suspect]
     Active Substance: GABAPENTIN
     Indication: BRUXISM
     Dosage: UNK
     Route: 065
  7. MIRTAZAPINE. [Suspect]
     Active Substance: MIRTAZAPINE
     Indication: INSOMNIA
     Dosage: 30 MILLIGRAM, DAILY
     Route: 065
  8. PROPRANOLOL [Suspect]
     Active Substance: PROPRANOLOL HYDROCHLORIDE
     Indication: BRUXISM
     Dosage: UNK
     Route: 065
  9. CLONIDINE. [Suspect]
     Active Substance: CLONIDINE
     Indication: BRUXISM
     Dosage: UNK
     Route: 065
  10. L DOPA [Suspect]
     Active Substance: LEVODOPA
     Indication: BRUXISM
     Dosage: UNK
     Route: 065
  11. MIRTAZAPINE. [Suspect]
     Active Substance: MIRTAZAPINE
     Indication: NAUSEA
     Dosage: 15 MILLIGRAM, DAILY
     Route: 065
  12. CLONAZEPAM. [Suspect]
     Active Substance: CLONAZEPAM
     Indication: BRUXISM
     Dosage: UNK
     Route: 065

REACTIONS (6)
  - Nausea [Recovering/Resolving]
  - Amnesia [Recovering/Resolving]
  - Drug ineffective [Unknown]
  - Therapeutic response unexpected [Unknown]
  - Decreased appetite [Recovering/Resolving]
  - Insomnia [Recovering/Resolving]
